FAERS Safety Report 8374971-5 (Version None)
Quarter: 2012Q2

REPORT INFORMATION
  Report Type: 
  Country: None (occurrence: None)
  Receive Date: 20120521
  Receipt Date: 20120516
  Transmission Date: 20120825
  Serious: Yes (Life-Threatening, Other)
  Sender: FDA-Public Use
  Company Number: JP-ASTRAZENECA-2012SE22556

PATIENT
  Age: 62 Year
  Sex: Male

DRUGS (1)
  1. ROPIVACAINE HYDROCHLORIDE [Suspect]
     Indication: POSTOPERATIVE ANALGESIA
     Dosage: 4ML/HR
     Route: 053

REACTIONS (3)
  - BRADYCARDIA [None]
  - LOSS OF CONSCIOUSNESS [None]
  - BUNDLE BRANCH BLOCK [None]
